FAERS Safety Report 4932234-1 (Version None)
Quarter: 2006Q1

REPORT INFORMATION
  Report Type: 
  Country: None (occurrence: None)
  Receive Date: 20060228
  Receipt Date: 20060213
  Transmission Date: 20060701
  Serious: Yes (Death)
  Sender: FDA-Public Use
  Company Number: 2006-00323

PATIENT
  Sex: 0

DRUGS (1)
  1. VELCADE [Suspect]

REACTIONS (1)
  - DISEASE PROGRESSION [None]
